FAERS Safety Report 6909191-1 (Version None)
Quarter: 2010Q3

REPORT INFORMATION
  Report Type: 
  Country: None (occurrence: None)
  Receive Date: 20100716
  Receipt Date: 20091223
  Transmission Date: 20110219
  Serious: Yes (Hospitalization, Disabling, Other)
  Sender: FDA-Public Use
  Company Number: 2005069202

PATIENT
  Age: 54 Year
  Sex: Male
  Weight: 84 kg

DRUGS (8)
  1. CELEBREX [Suspect]
     Indication: ARTHRITIS
     Dosage: 200 MG, 2X/DAY, ORAL
     Route: 048
     Dates: end: 20020101
  2. CELEBREX [Suspect]
     Indication: BACK PAIN
     Dosage: 200 MG, 2X/DAY, ORAL
     Route: 048
     Dates: end: 20020101
  3. ZOCOR [Concomitant]
  4. OXYCOD (OXYCODONE HYDROCHLORIDE) [Concomitant]
  5. ASPIRIN [Concomitant]
  6. ZANTAC (RANITIDINE HYDROCHLORID) [Concomitant]
  7. ATENOLOL [Concomitant]
  8. PLAVIX [Concomitant]

REACTIONS (7)
  - CARDIAC FAILURE [None]
  - CEREBROVASCULAR ACCIDENT [None]
  - CHEST PAIN [None]
  - GASTRIC HAEMORRHAGE [None]
  - GASTRIC ULCER [None]
  - MYOCARDIAL INFARCTION [None]
  - VEIN DISORDER [None]
